FAERS Safety Report 8130163-6 (Version None)
Quarter: 2012Q1

REPORT INFORMATION
  Report Type: 
  Country: None (occurrence: None)
  Receive Date: 20120210
  Receipt Date: 20120208
  Transmission Date: 20120608
  Serious: Yes (Hospitalization)
  Sender: FDA-Public Use
  Company Number: NZ-ABBOTT-12P-118-0902966-01

PATIENT
  Sex: Female

DRUGS (6)
  1. NORTRIPTYLINE HCL [Concomitant]
     Indication: OSTEOARTHRITIS
  2. NORTRIPTYLINE HCL [Concomitant]
     Indication: PAIN
     Dates: start: 20100830
  3. HUMIRA [Suspect]
     Indication: CROHN'S DISEASE
     Route: 058
     Dates: start: 20081113
  4. SULFASALAZINE [Concomitant]
     Indication: CROHN'S DISEASE
     Dates: start: 20010101
  5. COMMERCIAL HUMIRA [Concomitant]
     Indication: CROHN'S DISEASE
     Route: 058
     Dates: start: 20080702
  6. PENTASA [Concomitant]
     Indication: CROHN'S DISEASE
     Dosage: 1 GM DAILY
     Dates: start: 19950101

REACTIONS (1)
  - SMALL INTESTINAL OBSTRUCTION [None]
